FAERS Safety Report 9530709 (Version 1)
Quarter: 2013Q2

REPORT INFORMATION
  Report Type: Spontaneous
  Country: US (occurrence: None)
  Receive Date: 20130418
  Receipt Date: 20130418
  Transmission Date: 20140414
  Serious: Yes (Other)
  Sender: FDA-Public Use
  Company Number: 1201USA04244

PATIENT
  Age: 08 Year
  Sex: Female
  Weight: 31.8 kg

DRUGS (1)
  1. SINGULAIR [Suspect]
     Indication: ASTHMA
     Dosage: 1 DF, QD. ORAL
     Route: 048
     Dates: start: 20090601, end: 20100414

REACTIONS (2)
  - Depression [None]
  - Anxiety [None]
